FAERS Safety Report 5766490-7 (Version None)
Quarter: 2008Q2

REPORT INFORMATION
  Report Type: 
  Country: None (occurrence: None)
  Receive Date: 20080606
  Receipt Date: 20080602
  Transmission Date: 20081010
  Serious: Yes (Death, Hospitalization, Other)
  Sender: FDA-Public Use
  Company Number: 2007SP023829

PATIENT
  Age: 67 Year
  Sex: Female
  Weight: 85 kg

DRUGS (1)
  1. TEMODAL [Suspect]
     Indication: GLIOBLASTOMA
     Dosage: 260 MG; QD; PO
     Route: 048
     Dates: start: 20071112, end: 20071118

REACTIONS (5)
  - DISEASE PROGRESSION [None]
  - GLIOBLASTOMA [None]
  - HALLUCINATION, VISUAL [None]
  - NEOPLASM RECURRENCE [None]
  - SLEEP DISORDER [None]
